FAERS Safety Report 19599703 (Version 1)
Quarter: 2021Q3

REPORT INFORMATION
  Report Type: Spontaneous
  Country: US (occurrence: US)
  Receive Date: 20210722
  Receipt Date: 20210722
  Transmission Date: 20211014
  Serious: Yes (Other)
  Sender: FDA-Public Use
  Company Number: US-OTSUKA-2018_024017

PATIENT
  Sex: Female

DRUGS (5)
  1. ABILIFY [Suspect]
     Active Substance: ARIPIPRAZOLE
     Indication: BIPOLAR DISORDER
     Dosage: 20 MG, QD
     Route: 065
  2. ABILIFY MAINTENA [Suspect]
     Active Substance: ARIPIPRAZOLE
     Indication: PRODUCT USED FOR UNKNOWN INDICATION
     Dosage: 400 MG, Q4 WEEKS
     Route: 030
  3. ABILIFY [Suspect]
     Active Substance: ARIPIPRAZOLE
     Indication: POST-TRAUMATIC STRESS DISORDER
  4. ABILIFY [Suspect]
     Active Substance: ARIPIPRAZOLE
     Indication: SCHIZOPHRENIA
     Dosage: 15 MG, QD
     Route: 065
     Dates: start: 2003
  5. ABILIFY [Suspect]
     Active Substance: ARIPIPRAZOLE
     Indication: ANXIETY
     Dosage: 30 MG, QD
     Route: 065
     Dates: end: 201604

REACTIONS (53)
  - Suicidal ideation [Recovered/Resolved]
  - Substance dependence [Unknown]
  - Sexually transmitted disease [Recovered/Resolved]
  - Blood sodium decreased [Unknown]
  - Dyspnoea [Unknown]
  - Aspartate aminotransferase increased [Unknown]
  - Shoplifting [Recovered/Resolved]
  - Divorced [Unknown]
  - Human papilloma virus test positive [Unknown]
  - Drug dependence [Unknown]
  - Globulins decreased [Unknown]
  - Mean cell haemoglobin increased [Unknown]
  - Panic disorder [Unknown]
  - Economic problem [Unknown]
  - Pancreatitis [Unknown]
  - Suicide attempt [Recovered/Resolved]
  - Venom poisoning [Unknown]
  - Pancreatic disorder [Unknown]
  - Injury [Unknown]
  - Albumin globulin ratio decreased [Unknown]
  - Type 2 diabetes mellitus [Unknown]
  - Blood glucose increased [Unknown]
  - Trichotillomania [Recovered/Resolved]
  - Compulsive shopping [Recovered/Resolved]
  - Neuropsychiatric symptoms [Unknown]
  - Haematocrit increased [Unknown]
  - Nephrolithiasis [Unknown]
  - Dermatillomania [Recovered/Resolved]
  - Schizoaffective disorder [Unknown]
  - Pneumonia [Unknown]
  - Obsessive-compulsive disorder [Recovered/Resolved]
  - Theft [Recovered/Resolved]
  - Sexual dysfunction [Recovered/Resolved]
  - Gambling disorder [Recovered/Resolved]
  - Emotional distress [Unknown]
  - Mental disorder [Unknown]
  - Haemoglobin increased [Unknown]
  - Ovarian cyst [Unknown]
  - Pain [Unknown]
  - Compulsive sexual behaviour [Recovered/Resolved]
  - Condition aggravated [Recovered/Resolved]
  - Product use in unapproved indication [Unknown]
  - Lipase increased [Unknown]
  - Hyperlipidaemia [Unknown]
  - Alanine aminotransferase increased [Unknown]
  - Substance use [Unknown]
  - Smear cervix abnormal [Unknown]
  - Attention deficit hyperactivity disorder [Unknown]
  - Blood chloride decreased [Unknown]
  - Blood alkaline phosphatase increased [Unknown]
  - Legal problem [Unknown]
  - Homeless [Unknown]
  - Drug abuse [Unknown]

NARRATIVE: CASE EVENT DATE: 2003
